FAERS Safety Report 12898197 (Version 1)
Quarter: 2016Q4

REPORT INFORMATION
  Report Type: Spontaneous
  Country: FR (occurrence: FR)
  Receive Date: 20161031
  Receipt Date: 20161031
  Transmission Date: 20170207
  Serious: Yes (Other)
  Sender: FDA-Public Use
  Company Number: FR-ABBVIE-16P-056-1767312-00

PATIENT
  Age: 76 Year
  Sex: Male

DRUGS (7)
  1. ENANTONE LP [Suspect]
     Active Substance: LEUPROLIDE ACETATE
     Indication: PROSTATE CANCER
     Dosage: UNK, Q6MONTHS
     Route: 058
  2. METHOTREXATE. [Suspect]
     Active Substance: METHOTREXATE
     Indication: SAPHO SYNDROME
     Dosage: 12.5MG, 1/WEEK
     Route: 048
     Dates: start: 2012
  3. STELARA [Suspect]
     Active Substance: USTEKINUMAB
     Indication: SAPHO SYNDROME
     Dosage: 90MG, UNK
     Route: 058
     Dates: start: 201208
  4. FOLIC ACID. [Suspect]
     Active Substance: FOLIC ACID
     Indication: SAPHO SYNDROME
     Dosage: UNK
     Route: 048
     Dates: start: 2012
  5. CORTANCYL [Suspect]
     Active Substance: PREDNISONE
     Indication: SAPHO SYNDROME
     Dosage: 5MG, QD
     Route: 048
     Dates: start: 2012
  6. LYRICA [Suspect]
     Active Substance: PREGABALIN
     Indication: PAIN
     Dosage: 200MG, QD
     Route: 048
  7. INEXIUM [Suspect]
     Active Substance: ESOMEPRAZOLE
     Indication: PRODUCT USED FOR UNKNOWN INDICATION
     Dosage: 20MG, QD
     Route: 048

REACTIONS (1)
  - Bladder transitional cell carcinoma [Not Recovered/Not Resolved]

NARRATIVE: CASE EVENT DATE: 20160914
